FAERS Safety Report 21661806 (Version 1)
Quarter: 2022Q4

REPORT INFORMATION
  Report Type: Spontaneous
  Country: TW (occurrence: None)
  Receive Date: 20221130
  Receipt Date: 20221130
  Transmission Date: 20230113
  Serious: Yes (Other)
  Sender: FDA-Public Use
  Company Number: TW-ROCHE-3226726

PATIENT
  Age: 59 Year
  Sex: Male

DRUGS (23)
  1. RITUXIMAB [Suspect]
     Active Substance: RITUXIMAB
     Indication: Diffuse large B-cell lymphoma
     Dosage: R-MINICHOP
     Route: 065
     Dates: start: 20210703, end: 20220107
  2. RITUXIMAB [Suspect]
     Active Substance: RITUXIMAB
     Dosage: R-DA-EPOCH
     Route: 065
     Dates: start: 20210703, end: 20220107
  3. RITUXIMAB [Suspect]
     Active Substance: RITUXIMAB
     Dosage: R-DHAP
     Route: 065
     Dates: start: 20220322, end: 20220630
  4. RITUXIMAB [Suspect]
     Active Substance: RITUXIMAB
     Dosage: R-BEAM
     Route: 065
     Dates: start: 20220908, end: 20220908
  5. RITUXIMAB [Suspect]
     Active Substance: RITUXIMAB
     Dosage: R-GEMOX
     Route: 065
     Dates: start: 20221119, end: 20221119
  6. CYCLOPHOSPHAMIDE [Concomitant]
     Active Substance: CYCLOPHOSPHAMIDE
     Indication: Diffuse large B-cell lymphoma
     Dosage: R-MINICHOP
     Dates: start: 20210703, end: 20220107
  7. CYCLOPHOSPHAMIDE [Concomitant]
     Active Substance: CYCLOPHOSPHAMIDE
     Dosage: R-DA-EPOCH
     Dates: start: 20210703, end: 20220107
  8. DOXORUBICIN [Concomitant]
     Active Substance: DOXORUBICIN
     Indication: Diffuse large B-cell lymphoma
     Dosage: R-MINICHOP
     Dates: start: 20210703, end: 20220107
  9. DOXORUBICIN [Concomitant]
     Active Substance: DOXORUBICIN
     Dosage: R-DA-EPOCH
     Dates: start: 20210703, end: 20220107
  10. VINCRISTINE [Concomitant]
     Active Substance: VINCRISTINE
     Indication: Diffuse large B-cell lymphoma
     Dosage: R-MINICHOP
     Dates: start: 20210703, end: 20220107
  11. VINCRISTINE [Concomitant]
     Active Substance: VINCRISTINE
     Dosage: R-DA-EPOCH
     Dates: start: 20210703, end: 20220107
  12. PREDNISONE [Concomitant]
     Active Substance: PREDNISONE
     Indication: Diffuse large B-cell lymphoma
     Dosage: R-MINICHOP
     Dates: start: 20210703, end: 20220107
  13. PREDNISONE [Concomitant]
     Active Substance: PREDNISONE
     Dosage: R-DA-EPOCH
     Dates: start: 20210703, end: 20220107
  14. ETOPOSIDE [Concomitant]
     Active Substance: ETOPOSIDE
     Indication: Diffuse large B-cell lymphoma
     Dosage: R-DA-EPOCH
     Dates: start: 20210703, end: 20220107
  15. ETOPOSIDE [Concomitant]
     Active Substance: ETOPOSIDE
     Dosage: R-BEAM
     Dates: start: 20220908, end: 20220908
  16. CISPLATIN [Concomitant]
     Active Substance: CISPLATIN
     Indication: Diffuse large B-cell lymphoma
     Dosage: R-DHAP
     Dates: start: 20220322, end: 20220630
  17. CYTARABINE [Concomitant]
     Active Substance: CYTARABINE
     Indication: Diffuse large B-cell lymphoma
     Dosage: R-DHAP
     Dates: start: 20220322, end: 20220630
  18. CYTARABINE [Concomitant]
     Active Substance: CYTARABINE
     Dosage: R-BEAM
     Dates: start: 20220908, end: 20220908
  19. DEXAMETHASONE [Concomitant]
     Active Substance: DEXAMETHASONE
     Indication: Diffuse large B-cell lymphoma
     Dosage: R-DHAP
     Dates: start: 20220322, end: 20220630
  20. CARMUSTINE [Concomitant]
     Active Substance: CARMUSTINE
     Indication: Diffuse large B-cell lymphoma
     Dosage: R-BEAM
     Dates: start: 20220908, end: 20220908
  21. MELPHALAN [Concomitant]
     Active Substance: MELPHALAN
     Indication: Diffuse large B-cell lymphoma
     Dosage: R-BEAM
     Dates: start: 20220908, end: 20220908
  22. GEMCITABINE [Concomitant]
     Active Substance: GEMCITABINE
     Indication: Diffuse large B-cell lymphoma
     Dosage: R-GEMOX
     Dates: start: 20221119, end: 20221119
  23. OXALIPLATIN [Concomitant]
     Active Substance: OXALIPLATIN
     Indication: Diffuse large B-cell lymphoma
     Dosage: R-GEMOX
     Dates: start: 20221119, end: 20221119

REACTIONS (6)
  - Cytopenia [Unknown]
  - Disease progression [Unknown]
  - Pyrexia [Unknown]
  - Splenomegaly [Unknown]
  - Serum ferritin increased [Unknown]
  - Ill-defined disorder [Unknown]

NARRATIVE: CASE EVENT DATE: 20220908
